FAERS Safety Report 7197832-6 (Version None)
Quarter: 2010Q4

REPORT INFORMATION
  Report Type: 
  Country: None (occurrence: None)
  Receive Date: 20101207
  Receipt Date: 20101129
  Transmission Date: 20110411
  Serious: Yes (Other)
  Sender: FDA-Public Use
  Company Number: 2010SP062650

PATIENT
  Sex: Female
  Weight: 31.9 kg

DRUGS (3)
  1. NOXAFIL (POSACONAZOLE /0172801/) [Suspect]
     Indication: ASPERGILLOSIS
     Dosage: 400 MG;BID;PO ; 600 MG;BID;PO
     Route: 048
     Dates: start: 20101011, end: 20101027
  2. NOXAFIL (POSACONAZOLE /0172801/) [Suspect]
     Indication: ASPERGILLOSIS
     Dosage: 400 MG;BID;PO ; 600 MG;BID;PO
     Route: 048
     Dates: start: 20101027, end: 20101109
  3. SPORANOX [Concomitant]

REACTIONS (2)
  - DRUG LEVEL DECREASED [None]
  - TREMOR [None]
